FAERS Safety Report 4332491-9 (Version None)
Quarter: 2004Q2

REPORT INFORMATION
  Report Type: 
  Country: None (occurrence: None)
  Receive Date: 20040401
  Receipt Date: 20040322
  Transmission Date: 20050107
  Serious: Yes (Hospitalization)
  Sender: FDA-Public Use
  Company Number: JP-JNJFOC-20040304658

PATIENT
  Age: 33 Year
  Sex: Female

DRUGS (4)
  1. OFLOXACIN [Suspect]
     Indication: ECZEMA INFECTED
     Dosage: ORAL
     Route: 048
     Dates: start: 19950320, end: 19950321
  2. PYOSTACINE (PRISTINAMYCIN) [Suspect]
     Indication: ECZEMA INFECTED
     Dosage: ORAL
     Route: 048
     Dates: start: 19950320, end: 19950321
  3. ZOVIRAX [Suspect]
     Indication: HERPES VIRUS INFECTION
     Dosage: TOPICAL
     Route: 061
     Dates: start: 19950317, end: 19950320
  4. ZOVIRAX [Suspect]
     Indication: HERPES VIRUS INFECTION
     Dosage: ORAL
     Route: 048
     Dates: start: 19950317, end: 19950320

REACTIONS (2)
  - ECZEMA [None]
  - SUPERINFECTION [None]
